FAERS Safety Report 8287948-5 (Version None)
Quarter: 2012Q2

REPORT INFORMATION
  Report Type: 
  Country: None (occurrence: None)
  Receive Date: 20120411
  Receipt Date: 20120411
  Transmission Date: 20120825
  Serious: Yes (Hospitalization)
  Sender: FDA-Public Use
  Company Number: None

PATIENT
  Age: 30 Year
  Sex: Female
  Weight: 52.1637 kg

DRUGS (2)
  1. MLN8237 [Suspect]
     Indication: NON-SMALL CELL LUNG CANCER
     Dosage: MLN8237
     Dates: start: 20120118, end: 20120306
  2. ERLOTINIB HYDROCHLORIDE [Suspect]
     Indication: NON-SMALL CELL LUNG CANCER
     Dosage: 100 MG
     Dates: start: 20120118, end: 20120319

REACTIONS (6)
  - CHEST PAIN [None]
  - COUGH [None]
  - RESPIRATORY DISTRESS [None]
  - TACHYCARDIA [None]
  - FEBRILE NEUTROPENIA [None]
  - HYPOXIA [None]
